FAERS Safety Report 6599517-3 (Version None)
Quarter: 2010Q1

REPORT INFORMATION
  Report Type: 
  Country: None (occurrence: None)
  Receive Date: 20100224
  Receipt Date: 20100210
  Transmission Date: 20100710
  Serious: Yes (Other)
  Sender: FDA-Public Use
  Company Number: BR-ROCHE-663776

PATIENT
  Sex: Female

DRUGS (7)
  1. PLACEBO (TOCILIZUMAB) [Suspect]
     Indication: RHEUMATOID ARTHRITIS
     Dosage: DOSE BLINDED
     Route: 042
     Dates: start: 20060322, end: 20090928
  2. METHOTREXATE [Suspect]
     Indication: RHEUMATOID ARTHRITIS
     Dosage: DOSE REPORTED AS 12.5 MG QS.
     Route: 048
     Dates: start: 20050711, end: 20090928
  3. OMEPRAZOLE [Concomitant]
     Route: 048
     Dates: start: 20080317, end: 20090928
  4. ACID FOLIC [Concomitant]
     Indication: RHEUMATOID ARTHRITIS
     Dosage: FREQUENCY: QS (SUFFICIENT QUANTITY)
     Route: 048
     Dates: start: 20050711, end: 20090928
  5. LEVOTHYROXINE SODIUM [Concomitant]
     Indication: HYPOTHYROIDISM
     Route: 048
     Dates: start: 20090710
  6. DIPYRONE [Concomitant]
     Indication: RHEUMATOID ARTHRITIS
     Dosage: DRUG: DIPIRONE; AS NEEDED
     Route: 048
     Dates: start: 20060924, end: 20090928
  7. PREDNISONE [Concomitant]
     Route: 048

REACTIONS (1)
  - ABORTION SPONTANEOUS [None]
